FAERS Safety Report 19835837 (Version 1)
Quarter: 2021Q3

REPORT INFORMATION
  Report Type: Spontaneous
  Country: PL (occurrence: PL)
  Receive Date: 20210915
  Receipt Date: 20210915
  Transmission Date: 20211014
  Serious: Yes (Other)
  Sender: FDA-Public Use
  Company Number: PL-PFIZER INC-2020262117

PATIENT
  Sex: Female

DRUGS (1)
  1. ZESSLY [Suspect]
     Active Substance: INFLIXIMAB
     Dosage: UNK
     Route: 042

REACTIONS (7)
  - Angioedema [Unknown]
  - Vomiting [Unknown]
  - Hypersensitivity [Unknown]
  - Pruritus [Unknown]
  - Headache [Unknown]
  - Hyperhidrosis [Unknown]
  - Swelling face [Unknown]
